FAERS Safety Report 16458712 (Version 1)
Quarter: 2019Q2

REPORT INFORMATION
  Report Type: Spontaneous
  Country: US (occurrence: US)
  Receive Date: 20190620
  Receipt Date: 20190620
  Transmission Date: 20190711
  Serious: No
  Sender: FDA-Public Use
  Company Number: US-THERAPEUTICSMD-2019TMD00695

PATIENT
  Sex: Female
  Weight: 86.17 kg

DRUGS (5)
  1. IMVEXXY [Suspect]
     Active Substance: ESTRADIOL
     Indication: LOSS OF LIBIDO
     Dosage: 10 ?G, 2X/WEEK BEFORE BED
     Route: 067
     Dates: start: 201901, end: 201903
  2. TRAMADOL. [Concomitant]
     Active Substance: TRAMADOL
  3. MELOXICAM. [Concomitant]
     Active Substance: MELOXICAM
  4. IMVEXXY [Suspect]
     Active Substance: ESTRADIOL
     Dosage: 10 ?G, 2X/WEEK BEFORE BED
     Route: 067
     Dates: start: 201903, end: 20190407
  5. UNSPECIFIED ESTROGEN PRODUCT [Suspect]
     Active Substance: UNSPECIFIED INGREDIENT
     Indication: LOSS OF LIBIDO
     Dosage: UNK
     Route: 048
     Dates: start: 201901, end: 2019

REACTIONS (3)
  - Off label use [Recovered/Resolved]
  - Vaginal haemorrhage [Recovered/Resolved]
  - Procedural pain [Recovered/Resolved]

NARRATIVE: CASE EVENT DATE: 2019
